FAERS Safety Report 5025037-3 (Version None)
Quarter: 2006Q2

REPORT INFORMATION
  Report Type: 
  Country: None (occurrence: None)
  Receive Date: 20060613
  Receipt Date: 20060507
  Transmission Date: 20061013
  Serious: Yes (Other)
  Sender: FDA-Public Use
  Company Number: US-AVENTIS-200614208US

PATIENT
  Sex: Female

DRUGS (16)
  1. LANTUS [Suspect]
     Indication: DIABETES MELLITUS NON-INSULIN-DEPENDENT
     Dosage: DOSE UNIT: UNITS
  2. OPTICLIK (INSULIN INJECTION PEN) [Suspect]
     Indication: DIABETES MELLITUS NON-INSULIN-DEPENDENT
     Dates: start: 20050101
  3. ZYRTEC [Concomitant]
     Dosage: DOSE: UNK
  4. COMBIVENT [Concomitant]
     Dosage: DOSE: UNK
  5. HUMALOG [Concomitant]
     Dosage: DOSE: UNK
  6. LIPITOR [Concomitant]
     Dosage: DOSE: UNK
  7. BENICAR                                 /USA/ [Concomitant]
     Dosage: DOSE: UNK
  8. ARTHROTEC [Concomitant]
     Dosage: DOSE: UNK
  9. SSRI [Concomitant]
     Dosage: DOSE: UNK
  10. DIOVAN [Concomitant]
     Dosage: DOSE: UNK
  11. TRICOR [Concomitant]
     Dosage: DOSE: UNK
  12. METOLAZONE [Concomitant]
     Dosage: DOSE: UNK
  13. ZELNORM [Concomitant]
     Dosage: DOSE: UNK
  14. GABAPENTIN [Concomitant]
     Dosage: DOSE: UNK
  15. PENTOXIFYLLINE [Concomitant]
     Dosage: DOSE: UNK
  16. BIAXIN [Concomitant]
     Dosage: DOSE: UNK

REACTIONS (10)
  - ANGINA PECTORIS [None]
  - CARDIAC DISORDER [None]
  - CATARACT DIABETIC [None]
  - DYSPNOEA EXERTIONAL [None]
  - ELECTROCARDIOGRAM ABNORMAL [None]
  - EYE HAEMORRHAGE [None]
  - FLUID RETENTION [None]
  - MEDICAL DEVICE COMPLICATION [None]
  - PHARMACEUTICAL PRODUCT COMPLAINT [None]
  - VISUAL DISTURBANCE [None]
